FAERS Safety Report 8231647-2 (Version None)
Quarter: 2012Q1

REPORT INFORMATION
  Report Type: 
  Country: None (occurrence: None)
  Receive Date: 20120320
  Receipt Date: 20120315
  Transmission Date: 20120608
  Serious: Yes (Other)
  Sender: FDA-Public Use
  Company Number: 2012S1000320

PATIENT
  Age: 58 Year
  Sex: Female

DRUGS (5)
  1. LIVALO [Suspect]
     Indication: HYPERCHOLESTEROLAEMIA
     Dosage: 2 MG;1X;PO
     Route: 048
     Dates: start: 20080108, end: 20120213
  2. ALENDRONATE SODIUM [Concomitant]
  3. CONIEL [Concomitant]
  4. ASPIRIN [Concomitant]
  5. DESYREL [Concomitant]

REACTIONS (3)
  - MYOGLOBIN BLOOD INCREASED [None]
  - BLOOD CREATINE PHOSPHOKINASE INCREASED [None]
  - ALDOLASE INCREASED [None]
